FAERS Safety Report 25663745 (Version 1)
Quarter: 2025Q3

REPORT INFORMATION
  Report Type: Spontaneous
  Country: JP (occurrence: JP)
  Receive Date: 20250811
  Receipt Date: 20250811
  Transmission Date: 20251020
  Serious: Yes (Hospitalization)
  Sender: SANDOZ
  Company Number: JP-002147023-NVSJ2019JP002945

PATIENT
  Age: 59 Year
  Sex: Female

DRUGS (9)
  1. CERTICAN [Suspect]
     Active Substance: EVEROLIMUS
     Indication: Prophylaxis against transplant rejection
     Dosage: 1.5 MG, QD
     Route: 048
  2. CERTICAN [Suspect]
     Active Substance: EVEROLIMUS
     Indication: Liver transplant
     Route: 048
  3. CERTICAN [Suspect]
     Active Substance: EVEROLIMUS
     Indication: Myelosuppression
     Route: 048
     Dates: start: 201810
  4. CERTICAN [Suspect]
     Active Substance: EVEROLIMUS
     Indication: Immunosuppressant drug therapy
  5. METHYLPREDNISOLONE [Suspect]
     Active Substance: METHYLPREDNISOLONE
     Indication: Immunosuppressant drug therapy
     Dosage: 4 MG, QD
     Route: 065
  6. METHYLPREDNISOLONE [Suspect]
     Active Substance: METHYLPREDNISOLONE
     Indication: Liver transplant
  7. TACROLIMUS [Suspect]
     Active Substance: TACROLIMUS
     Indication: Liver transplant
     Dosage: 3 MG, QD
     Route: 065
  8. TACROLIMUS [Suspect]
     Active Substance: TACROLIMUS
     Indication: Prophylaxis against transplant rejection
     Route: 065
  9. TACROLIMUS [Suspect]
     Active Substance: TACROLIMUS
     Indication: Immunosuppressant drug therapy

REACTIONS (10)
  - Progressive multifocal leukoencephalopathy [Recovered/Resolved]
  - Tonic convulsion [Unknown]
  - Electroencephalogram abnormal [Unknown]
  - Magnetic resonance imaging abnormal [Unknown]
  - Memory impairment [Unknown]
  - Acalculia [Unknown]
  - Agraphia [Unknown]
  - JC polyomavirus test positive [Unknown]
  - Mental impairment [Unknown]
  - White matter lesion [Unknown]

NARRATIVE: CASE EVENT DATE: 20190401
